FAERS Safety Report 4639895-5 (Version None)
Quarter: 2005Q2

REPORT INFORMATION
  Report Type: 
  Country: None (occurrence: None)
  Receive Date: 20050328
  Receipt Date: 20050107
  Transmission Date: 20051028
  Serious: No
  Sender: FDA-Public Use
  Company Number: USA050187716

PATIENT
  Age: 6 Year
  Sex: Male
  Weight: 77 kg

DRUGS (5)
  1. STRATTERA [Suspect]
     Indication: ATTENTION DEFICIT/HYPERACTIVITY DISORDER
     Dosage: 40 MG IN THE MORNING
     Dates: start: 20041201
  2. LAMICTAL [Concomitant]
  3. HALDOL (HALOPERIDOL DECANOATE) [Concomitant]
  4. RISPERDAL [Concomitant]
  5. CLARINEX  / USA/ (DESLORATADINE) [Concomitant]

REACTIONS (1)
  - TIC [None]
